FAERS Safety Report 4408892-7 (Version None)
Quarter: 2004Q3

REPORT INFORMATION
  Report Type: 
  Country: None (occurrence: None)
  Receive Date: 20040727
  Receipt Date: 20040519
  Transmission Date: 20050211
  Serious: Yes (Hospitalization)
  Sender: FDA-Public Use
  Company Number: PHBS2004BR06634

PATIENT
  Age: 59 Year
  Sex: Male

DRUGS (3)
  1. LEPONEX [Suspect]
     Indication: SCHIZOPHRENIA
     Dosage: 6 TABLETS/D
     Route: 048
  2. DEPAKENE [Concomitant]
     Indication: CONVULSION
     Route: 065
  3. HIDANTAL [Concomitant]
     Indication: CONVULSION
     Route: 065

REACTIONS (4)
  - MYOCARDIAL ISCHAEMIA [None]
  - PLEURAL EFFUSION [None]
  - PNEUMONIA [None]
  - THORACIC CAVITY DRAINAGE [None]
